FAERS Safety Report 5159930-8 (Version None)
Quarter: 2006Q4

REPORT INFORMATION
  Report Type: 
  Country: None (occurrence: None)
  Receive Date: 20061117
  Receipt Date: 20061110
  Transmission Date: 20070319
  Serious: Yes (Other)
  Sender: FDA-Public Use
  Company Number: 2006106005

PATIENT
  Sex: Female
  Weight: 73.9363 kg

DRUGS (12)
  1. ZOLOFT [Suspect]
     Indication: DEPRESSION
     Dosage: 100 MG (100 MG, 1 IN 1 D), ORAL
     Route: 048
     Dates: start: 20040601
  2. ARICEPT [Concomitant]
  3. ANDION (BECLOMETASONE DIPROPIONATE) [Concomitant]
  4. ACIPHEX [Concomitant]
  5. ACIPHEX [Concomitant]
  6. TOPROL-XL [Concomitant]
  7. XALATAN [Concomitant]
  8. LIPITOR [Concomitant]
  9. CELEBREX [Concomitant]
  10. ALL OTHER THERAPEUTIC PRODUCTS [Concomitant]
  11. ALBUTEROL [Concomitant]
  12. FLEXERIL [Concomitant]

REACTIONS (11)
  - ARTHRITIS [None]
  - BACK PAIN [None]
  - BLOOD CHOLESTEROL INCREASED [None]
  - CEREBROVASCULAR ACCIDENT [None]
  - CHRONIC OBSTRUCTIVE PULMONARY DISEASE [None]
  - CORONARY ARTERY DISEASE [None]
  - DEMENTIA [None]
  - DRUG INEFFECTIVE [None]
  - GASTROOESOPHAGEAL REFLUX DISEASE [None]
  - HYPERTENSION [None]
  - HYPOGLYCAEMIA [None]
